FAERS Safety Report 10595547 (Version 2)
Quarter: 2014Q4

REPORT INFORMATION
  Report Type: Report from Study
  Country: ZA (occurrence: ZA)
  Receive Date: 20141120
  Receipt Date: 20141212
  Transmission Date: 20150529
  Serious: Yes (Hospitalization, Other)
  Sender: FDA-Public Use
  Company Number: PHHY2014ZA149002

PATIENT
  Age: 71 Year
  Sex: Female

DRUGS (1)
  1. HYDROCHLOROTHIAZIDE\VALSARTAN [Suspect]
     Active Substance: HYDROCHLOROTHIAZIDE\VALSARTAN
     Indication: HYPERTENSION
     Dosage: 1 DF  (160 MG VALSARTAN/ 25 MG HYDROCHLOROTHIAYIDE)
     Route: 048
     Dates: start: 20141013

REACTIONS (5)
  - Injury [Unknown]
  - Wound infection [Unknown]
  - Infection [Recovering/Resolving]
  - Fall [Unknown]
  - Wound [Recovering/Resolving]

NARRATIVE: CASE EVENT DATE: 20141107
